FAERS Safety Report 11244690 (Version 1)
Quarter: 2015Q3

REPORT INFORMATION
  Report Type: Spontaneous
  Country: AU (occurrence: AU)
  Receive Date: 20150707
  Receipt Date: 20150707
  Transmission Date: 20151125
  Serious: Yes (Other)
  Sender: FDA-Public Use
  Company Number: AU-GUERBET LLC-1040382

PATIENT
  Sex: Male

DRUGS (1)
  1. LIPIODOL [Suspect]
     Active Substance: ETHIODIZED OIL

REACTIONS (3)
  - Chills [Unknown]
  - Bronchospasm [Unknown]
  - Pyrexia [Unknown]
